FAERS Safety Report 8455676-9 (Version None)
Quarter: 2012Q2

REPORT INFORMATION
  Report Type: 
  Country: None (occurrence: None)
  Receive Date: 20120621
  Receipt Date: 20120611
  Transmission Date: 20120825
  Serious: Yes (Hospitalization)
  Sender: FDA-Public Use
  Company Number: US-JNJFOC-20120111791

PATIENT

DRUGS (15)
  1. CEFAZOLIN [Concomitant]
     Indication: ANTIBIOTIC PROPHYLAXIS
     Route: 065
  2. DOXORUBICIN HCL [Suspect]
     Indication: OESOPHAGEAL CANCER METASTATIC
     Route: 013
  3. ETHIODIZED OIL [Suspect]
     Indication: OESOPHAGEAL CANCER METASTATIC
     Route: 013
  4. FENTANYL [Concomitant]
     Indication: SEDATION
     Route: 042
  5. MIDAZOLAM [Concomitant]
     Indication: SEDATION
     Route: 042
  6. LIDOCAINE [Concomitant]
     Indication: SEDATION
     Route: 013
  7. DIPHENHYDRAMINE HCL [Concomitant]
     Indication: PROPHYLAXIS OF NAUSEA AND VOMITING
     Route: 065
  8. ONDANSETRON [Concomitant]
     Indication: PROPHYLAXIS OF NAUSEA AND VOMITING
     Route: 065
  9. DEXAMETHASONE SODIUM POSPHATE [Concomitant]
     Indication: PROPHYLAXIS OF NAUSEA AND VOMITING
     Route: 065
  10. DOXORUBICIN HCL [Suspect]
     Route: 013
  11. MITOMYCIN [Suspect]
     Indication: OESOPHAGEAL CANCER METASTATIC
     Route: 013
  12. CISPLATIN [Suspect]
     Indication: OESOPHAGEAL CANCER METASTATIC
     Route: 013
  13. METRONIDAZOLE [Concomitant]
     Indication: ANTIBIOTIC PROPHYLAXIS
     Route: 065
  14. POLYVINYL ALCOHOL [Suspect]
     Indication: OESOPHAGEAL CANCER METASTATIC
     Route: 013
  15. LIDOCAINE [Concomitant]
     Route: 065

REACTIONS (4)
  - CONFUSIONAL STATE [None]
  - INCORRECT ROUTE OF DRUG ADMINISTRATION [None]
  - OFF LABEL USE [None]
  - DEHYDRATION [None]
